FAERS Safety Report 6441406-9 (Version None)
Quarter: 2009Q4

REPORT INFORMATION
  Report Type: 
  Country: None (occurrence: None)
  Receive Date: 20091116
  Receipt Date: 20091110
  Transmission Date: 20100525
  Serious: Yes (Other)
  Sender: FDA-Public Use
  Company Number: BR-PFIZER INC-2009295664

PATIENT
  Age: 40 Year
  Sex: Male
  Weight: 75 kg

DRUGS (2)
  1. CELEBRA [Suspect]
     Indication: TENDONITIS
     Dosage: 200 MG, 2X/DAY
     Route: 048
     Dates: start: 20070101
  2. CELEBRA [Suspect]
     Dosage: UNK
     Dates: start: 20091109

REACTIONS (5)
  - ACCIDENT AT WORK [None]
  - BACK PAIN [None]
  - DRUG INEFFECTIVE [None]
  - LIMB INJURY [None]
  - TENDON INJURY [None]
